FAERS Safety Report 25073696 (Version 1)
Quarter: 2025Q1

REPORT INFORMATION
  Report Type: Spontaneous
  Country: US (occurrence: US)
  Receive Date: 20250313
  Receipt Date: 20250313
  Transmission Date: 20250408
  Serious: No
  Sender: PURACAP PHARMACEUTICAL LLC
  Company Number: US-PURACAP-US-2025EPCSPO00251

PATIENT

DRUGS (1)
  1. BENZONATATE [Suspect]
     Active Substance: BENZONATATE
     Indication: Cough
     Route: 065

REACTIONS (11)
  - Dyspnoea [Unknown]
  - Wheezing [Unknown]
  - Palpitations [Unknown]
  - Dysphagia [Unknown]
  - Tinnitus [Unknown]
  - Pruritus [Unknown]
  - Confusional state [Unknown]
  - Dizziness [Unknown]
  - Headache [Unknown]
  - Hypoaesthesia oral [Unknown]
  - Drug ineffective [Unknown]
